FAERS Safety Report 9514337 (Version 6)
Quarter: 2014Q1

REPORT INFORMATION
  Report Type: Spontaneous
  Country: BR (occurrence: BR)
  Receive Date: 20130911
  Receipt Date: 20140118
  Transmission Date: 20141002
  Serious: Yes (Other)
  Sender: FDA-Public Use
  Company Number: BR-JNJFOC-20130710590

PATIENT
  Age: 52 Year
  Sex: Female
  Weight: 63 kg

DRUGS (18)
  1. IBUPROFEN [Suspect]
     Indication: OROPHARYNGEAL PAIN
     Route: 065
     Dates: start: 20130701
  2. PRISTIQ [Suspect]
     Indication: DEPRESSION
     Route: 048
     Dates: start: 20130701, end: 201307
  3. PRISTIQ [Suspect]
     Indication: DEPRESSION
     Route: 048
     Dates: start: 201307, end: 201309
  4. PRISTIQ [Suspect]
     Indication: DEPRESSION
     Route: 048
  5. PRISTIQ [Suspect]
     Indication: DEPRESSION
     Route: 048
  6. PRISTIQ [Suspect]
     Indication: SOCIAL PHOBIA
     Route: 048
  7. PRISTIQ [Suspect]
     Indication: SOCIAL PHOBIA
     Route: 048
  8. PRISTIQ [Suspect]
     Indication: SOCIAL PHOBIA
     Route: 048
     Dates: start: 201307, end: 201309
  9. PRISTIQ [Suspect]
     Indication: SOCIAL PHOBIA
     Route: 048
     Dates: start: 20130701, end: 201307
  10. PRISTIQ [Suspect]
     Indication: ANXIETY
     Route: 048
  11. PRISTIQ [Suspect]
     Indication: ANXIETY
     Route: 048
  12. PRISTIQ [Suspect]
     Indication: ANXIETY
     Route: 048
     Dates: start: 201307, end: 201309
  13. PRISTIQ [Suspect]
     Indication: ANXIETY
     Route: 048
     Dates: start: 20130701, end: 201307
  14. PRISTIQ [Suspect]
     Indication: PANIC DISORDER
     Route: 048
     Dates: start: 20130701, end: 201307
  15. PRISTIQ [Suspect]
     Indication: PANIC DISORDER
     Route: 048
  16. PRISTIQ [Suspect]
     Indication: PANIC DISORDER
     Route: 048
  17. PRISTIQ [Suspect]
     Indication: PANIC DISORDER
     Route: 048
     Dates: start: 201307, end: 201309
  18. TRANQUINAL [Concomitant]
     Indication: SLEEP DISORDER
     Route: 065

REACTIONS (26)
  - Musculoskeletal stiffness [Unknown]
  - Agitation [Unknown]
  - Neuralgia [Unknown]
  - Sinusitis [Recovering/Resolving]
  - Muscle rigidity [Unknown]
  - Pain [Recovered/Resolved]
  - Blood pressure fluctuation [Unknown]
  - Feeling abnormal [Not Recovered/Not Resolved]
  - Bedridden [Recovered/Resolved]
  - Myalgia [Not Recovered/Not Resolved]
  - Amnesia [Recovered/Resolved]
  - Retching [Recovered/Resolved]
  - Abdominal discomfort [Recovered/Resolved]
  - Pharyngitis [Recovered/Resolved]
  - Activities of daily living impaired [Recovered/Resolved]
  - Tremor [Recovered/Resolved]
  - Hot flush [Recovered/Resolved]
  - Discomfort [Recovered/Resolved]
  - Musculoskeletal stiffness [Recovered/Resolved]
  - Feeling abnormal [Recovered/Resolved]
  - Off label use [Unknown]
  - Erythema [Unknown]
  - Erythema [Unknown]
  - Feeling hot [Unknown]
  - Headache [Recovered/Resolved]
  - Nausea [Recovered/Resolved]
